FAERS Safety Report 18649382 (Version 3)
Quarter: 2020Q4

REPORT INFORMATION
  Report Type: Report from Study
  Country: None (occurrence: CA)
  Receive Date: 20201222
  Receipt Date: 20201228
  Transmission Date: 20210114
  Serious: Yes (Hospitalization, Other)
  Sender: FDA-Public Use
  Company Number: CA-ABBVIE-20K-028-3701997-00

PATIENT
  Sex: Female

DRUGS (1)
  1. RINVOQ [Suspect]
     Active Substance: UPADACITINIB
     Indication: RHEUMATOID ARTHRITIS
     Route: 048
     Dates: end: 20201212

REACTIONS (10)
  - Herpes zoster [Unknown]
  - Blood potassium decreased [Unknown]
  - Oral herpes [Recovered/Resolved]
  - Poor peripheral circulation [Unknown]
  - Blood glucose decreased [Unknown]
  - Blood iron decreased [Unknown]
  - Oxygen saturation decreased [Unknown]
  - Sepsis [Unknown]
  - Lower respiratory tract infection [Unknown]
  - Rash [Unknown]

NARRATIVE: CASE EVENT DATE: 2020
